FAERS Safety Report 17309273 (Version 2)
Quarter: 2020Q1

REPORT INFORMATION
  Report Type: Report from Study
  Country: FR (occurrence: FR)
  Receive Date: 20200123
  Receipt Date: 20200214
  Transmission Date: 20200409
  Serious: Yes (Death)
  Sender: FDA-Public Use
  Company Number: FR-PORTOLA PHARMACEUTICALS, INC.-2020FR000015

PATIENT
  Age: 71 Year
  Sex: Male

DRUGS (3)
  1. ANDEXXA [Suspect]
     Active Substance: ANDEXANET ALFA
     Indication: PROCOAGULANT THERAPY
     Dosage: 400 MG, SINGLE
     Route: 040
     Dates: start: 20191210, end: 20191210
  2. ANDEXXA [Suspect]
     Active Substance: ANDEXANET ALFA
     Dosage: 480 MG, SINGLE
     Route: 042
     Dates: start: 20191210, end: 20191210
  3. APIXABAN [Concomitant]
     Active Substance: APIXABAN
     Indication: PRODUCT USED FOR UNKNOWN INDICATION
     Dosage: 5 MG, BID
     Dates: end: 20191209

REACTIONS (1)
  - Respiratory distress [Fatal]
